FAERS Safety Report 8368909-4 (Version None)
Quarter: 2012Q2

REPORT INFORMATION
  Report Type: 
  Country: None (occurrence: None)
  Receive Date: 20120516
  Receipt Date: 20120501
  Transmission Date: 20120825
  Serious: Yes (Other)
  Sender: FDA-Public Use
  Company Number: LMI-2012-00164

PATIENT
  Age: 67 Year
  Sex: Female
  Weight: 120 kg

DRUGS (24)
  1. DEFINITY [Suspect]
     Indication: CARDIAC FAILURE CONGESTIVE
     Dosage: 2 ML DEFINITY DILUTED WITH 8 ML NORMAL SALINE (1 ML), INTRAVENOUS BOLUS
     Route: 042
     Dates: start: 20120428, end: 20120428
  2. DEFINITY [Suspect]
     Indication: ECHOCARDIOGRAM
     Dosage: 2 ML DEFINITY DILUTED WITH 8 ML NORMAL SALINE (1 ML), INTRAVENOUS BOLUS
     Route: 042
     Dates: start: 20120428, end: 20120428
  3. DEFINITY [Suspect]
     Indication: CARDIAC FAILURE CONGESTIVE
     Dosage: 2 ML DEFINITY DILUTED WITH 8 ML NORMAL SALINE (1 ML), INTRAVENOUS BOLUS
     Route: 042
     Dates: start: 20120428, end: 20120428
  4. DEFINITY [Suspect]
     Indication: ECHOCARDIOGRAM
     Dosage: 2 ML DEFINITY DILUTED WITH 8 ML NORMAL SALINE (1 ML), INTRAVENOUS BOLUS
     Route: 042
     Dates: start: 20120428, end: 20120428
  5. DEFINITY [Suspect]
     Indication: CARDIAC FAILURE CONGESTIVE
     Dosage: 2 ML DEFINITY DILUTED WITH 8 ML NORMAL SALINE (1 ML), INTRAVENOUS BOLUS
     Route: 042
     Dates: start: 20120428, end: 20120428
  6. DEFINITY [Suspect]
     Indication: ECHOCARDIOGRAM
     Dosage: 2 ML DEFINITY DILUTED WITH 8 ML NORMAL SALINE (1 ML), INTRAVENOUS BOLUS
     Route: 042
     Dates: start: 20120428, end: 20120428
  7. LEXAPRO [Concomitant]
  8. IRON [Concomitant]
  9. LASIX [Concomitant]
  10. LOSARTAN POTASSIUM [Concomitant]
  11. METOPROLOL [Concomitant]
  12. TRAZODONE HCL [Concomitant]
  13. AUGMENTIN '125' [Concomitant]
  14. LATANOPROST [Concomitant]
  15. METHYLPREDNISOLONE [Concomitant]
  16. PRANDIN (DEFLAZACORT) [Concomitant]
  17. ZOCOR [Concomitant]
  18. LOVENOX [Concomitant]
  19. LIDOCAINE [Concomitant]
  20. ALBUTEROL [Concomitant]
  21. INSULIN [Concomitant]
  22. MAGNESIUM OXIDE [Concomitant]
  23. ASPIRIN [Concomitant]
  24. IPRATROPIUM BROMIDE [Concomitant]

REACTIONS (3)
  - BACK PAIN [None]
  - ANXIETY [None]
  - ACUTE MYOCARDIAL INFARCTION [None]
